FAERS Safety Report 10993401 (Version 1)
Quarter: 2015Q2

REPORT INFORMATION
  Report Type: Spontaneous
  Country: US (occurrence: US)
  Receive Date: 20150407
  Receipt Date: 20150407
  Transmission Date: 20150821
  Serious: No
  Sender: FDA-Public Use
  Company Number: US-009507513-1503USA013927

PATIENT
  Age: 40 Year
  Sex: Female

DRUGS (2)
  1. NUVARING [Suspect]
     Active Substance: ETHINYL ESTRADIOL\ETONOGESTREL
     Dosage: UNK, 3 WEEKS IN,1 WEEK BREAK
     Route: 067
     Dates: start: 2003
  2. NUVARING [Suspect]
     Active Substance: ETHINYL ESTRADIOL\ETONOGESTREL
     Dosage: UNK, 3 WEEKS IN,1 WEEK BREAK
     Route: 067

REACTIONS (2)
  - Device expulsion [Recovered/Resolved]
  - Inappropriate schedule of drug administration [Unknown]
